FAERS Safety Report 8143540-4 (Version None)
Quarter: 2012Q1

REPORT INFORMATION
  Report Type: 
  Country: None (occurrence: None)
  Receive Date: 20120217
  Receipt Date: 20120209
  Transmission Date: 20120608
  Serious: Yes (Other)
  Sender: FDA-Public Use
  Company Number: DE-UCBSA-023964

PATIENT
  Age: 75 Year
  Sex: Female

DRUGS (13)
  1. CERTOLIZUMAB PEGOL [Suspect]
     Indication: RHEUMATOID ARTHRITIS
     Route: 058
     Dates: start: 20101013, end: 20101216
  2. METHOTREXATE [Concomitant]
     Indication: RHEUMATOID ARTHRITIS
     Dosage: SUFFICIENT QUANTITY
     Dates: start: 20081022
  3. PANTOPRAZOLE [Concomitant]
     Indication: GASTRIC DISORDER
     Dosage: MORNING
     Dates: start: 20101001
  4. LEVOTHYROXINE SODIUM [Concomitant]
     Indication: HYPOTHYROIDISM
     Dosage: MORNING
     Dates: start: 19910101
  5. RAMIPRIL [Concomitant]
     Indication: HYPERTENSION
     Dosage: 5/25 MG, MORNING
     Dates: start: 20080201
  6. MARCUMAR [Concomitant]
     Indication: COAGULOPATHY
     Dosage: 1/2-1
     Dates: start: 20101022
  7. IBUPROFEN [Concomitant]
     Indication: RHEUMATOID ARTHRITIS
     Dosage: PRN
     Dates: start: 20081022, end: 20090422
  8. AMLODIPINE [Concomitant]
     Dates: start: 20101101
  9. PREDNISOLONE [Concomitant]
     Route: 048
     Dates: start: 20101216
  10. PANTOPRAZOLE [Concomitant]
     Indication: ABDOMINAL PAIN UPPER
     Dosage: MORNING
     Dates: start: 20101001
  11. AMLODIPINE [Concomitant]
     Indication: HYPERTENSION
     Dates: start: 20101101
  12. PREDNISOLONE [Concomitant]
     Indication: RHEUMATOID ARTHRITIS
     Dosage: 5-20 MG
     Dates: start: 20081022
  13. FOLIC ACID [Concomitant]
     Indication: RHEUMATOID ARTHRITIS
     Dosage: SUFFICIENT QUANTITY
     Dates: start: 20090715

REACTIONS (3)
  - MACULAR HOLE [None]
  - DEEP VEIN THROMBOSIS [None]
  - RETINAL ARTERY OCCLUSION [None]
